FAERS Safety Report 9171554 (Version 2)
Quarter: 2013Q1

REPORT INFORMATION
  Report Type: Spontaneous
  Country: DK (occurrence: JP)
  Receive Date: 20130319
  Receipt Date: 20130329
  Transmission Date: 20140127
  Serious: Yes (Other)
  Sender: FDA-Public Use
  Company Number: JP-FRI-1000025967

PATIENT
  Age: 60 Year
  Sex: Female
  Weight: 46 kg

DRUGS (5)
  1. LEXAPRO [Suspect]
     Indication: MAJOR DEPRESSION
     Dosage: 10 MG
     Route: 048
     Dates: start: 20110923, end: 20111015
  2. SEROQUEL [Concomitant]
     Indication: ANXIETY
     Dosage: 150
     Route: 048
     Dates: start: 20110513, end: 20111015
  3. BLOPRESS [Concomitant]
     Indication: HYPERTENSION
     Dosage: 8 MG
     Route: 048
     Dates: start: 20110316
  4. THYRADIN [Concomitant]
     Indication: HYPOTHYROIDISM
     Route: 048
     Dates: start: 20110701
  5. HEBERNA [Concomitant]
     Indication: DYSKINESIA
     Dosage: 75 MG
     Route: 048
     Dates: start: 20110930, end: 20111012

REACTIONS (2)
  - Neuroleptic malignant syndrome [Recovering/Resolving]
  - Neurogenic bladder [Not Recovered/Not Resolved]
